FAERS Safety Report 15591611 (Version 1)
Quarter: 2018Q4

REPORT INFORMATION
  Report Type: Spontaneous
  Country: JP (occurrence: JP)
  Receive Date: 20181107
  Receipt Date: 20181107
  Transmission Date: 20190205
  Serious: Yes (Hospitalization, Other)
  Sender: FDA-Public Use
  Company Number: JP-PFIZER INC-2018445815

PATIENT
  Age: 82 Year
  Sex: Male
  Weight: 47 kg

DRUGS (4)
  1. TAKECAB [Concomitant]
     Active Substance: VONOPRAZAN FUMURATE
     Dosage: UNK
  2. NINJINTO [ATRACTYLODES LANCEA RHIZOME;GLYCYRRHIZA SPP. ROOT;PANAX GINS [Concomitant]
     Dosage: UNK
  3. CEFTRIAXONE SODIUM PFIZER [Suspect]
     Active Substance: CEFTRIAXONE SODIUM
     Indication: LUNG INFECTION
     Dosage: 2 G, 2X/DAY
     Route: 042
     Dates: start: 20181013, end: 20181018
  4. THYRADIN S [Concomitant]
     Active Substance: LEVOTHYROXINE SODIUM
     Dosage: UNK

REACTIONS (3)
  - Altered state of consciousness [Recovered/Resolved]
  - Accidental overdose [Unknown]
  - Toxic encephalopathy [Unknown]

NARRATIVE: CASE EVENT DATE: 201810
